FAERS Safety Report 4383212-5 (Version None)
Quarter: 2004Q2

REPORT INFORMATION
  Report Type: 
  Country: None (occurrence: None)
  Receive Date: 20040623
  Receipt Date: 20040609
  Transmission Date: 20050107
  Serious: Yes (Other)
  Sender: FDA-Public Use
  Company Number: PHBS2004NO07700

PATIENT
  Sex: Female

DRUGS (8)
  1. TEGRETOL [Suspect]
     Indication: EPILEPSY
     Dosage: 200 MG, BID
     Route: 048
     Dates: start: 19950601
  2. TEGRETOL [Suspect]
     Dosage: 600 MG/DAY
     Route: 048
     Dates: start: 19951001
  3. TEGRETOL [Suspect]
     Dosage: 400 MG, BID
     Route: 048
     Dates: start: 19980801
  4. TEGRETOL [Suspect]
     Dosage: 1000 MG/DAY
     Route: 048
     Dates: start: 20000601, end: 20011001
  5. IMOVANE [Concomitant]
     Dosage: 7.5 MG WHEN NEEDED
     Route: 065
  6. VITAMIN B-12 [Concomitant]
     Dosage: EVERY 3 MONTH
     Route: 065
  7. DUROFERON [Concomitant]
     Dosage: 200 MG
     Route: 065
  8. ZOLOFT [Concomitant]
     Indication: DEPRESSION
     Dosage: 50 MG/DAY
     Route: 065
     Dates: start: 19980901

REACTIONS (17)
  - ABDOMINAL PAIN UPPER [None]
  - AMNESIA [None]
  - ANGER [None]
  - ASTHENIA [None]
  - BLOOD FOLATE DECREASED [None]
  - CEREBROVASCULAR ACCIDENT [None]
  - CONVULSION [None]
  - DEPRESSED MOOD [None]
  - DISORIENTATION [None]
  - DISTURBANCE IN ATTENTION [None]
  - DIZZINESS [None]
  - DYSKINESIA [None]
  - FATIGUE [None]
  - HEARING IMPAIRED [None]
  - MOOD SWINGS [None]
  - STRESS SYMPTOMS [None]
  - VITAMIN B12 INCREASED [None]
